FAERS Safety Report 4442637-X (Version None)
Quarter: 2004Q3

REPORT INFORMATION
  Report Type: 
  Country: None (occurrence: None)
  Receive Date: 20040901
  Receipt Date: 20040607
  Transmission Date: 20050211
  Serious: Yes (Other)
  Sender: FDA-Public Use
  Company Number: 2004UW11787

PATIENT
  Age: 78 Year
  Sex: Female
  Weight: 99.7913 kg

DRUGS (10)
  1. CRESTOR [Suspect]
     Indication: BLOOD CHOLESTEROL INCREASED
  2. CRESTOR [Suspect]
     Indication: BLOOD CHOLESTEROL INCREASED
  3. ATACAND [Concomitant]
  4. WATER PILL [Concomitant]
  5. K-DUR 10 [Concomitant]
  6. PERCOCET [Concomitant]
  7. CELEBREX [Concomitant]
  8. BABY ACETYLSALICYLIC ACID [Concomitant]
  9. GLUCOSAMINE [Concomitant]
  10. FOLIC ACID [Concomitant]

REACTIONS (1)
  - MUSCLE SPASMS [None]
